FAERS Safety Report 4934751-7 (Version None)
Quarter: 2006Q1

REPORT INFORMATION
  Report Type: 
  Country: None (occurrence: None)
  Receive Date: 20060307
  Receipt Date: 20051102
  Transmission Date: 20060701
  Serious: Yes (Death, Hospitalization, Other)
  Sender: FDA-Public Use
  Company Number: US-MERCK-0511USA00632

PATIENT
  Age: 52 Year
  Sex: Male
  Weight: 61 kg

DRUGS (12)
  1. VIOXX [Suspect]
     Indication: BACK PAIN
     Route: 048
     Dates: start: 19991028, end: 20010122
  2. VIOXX [Suspect]
     Indication: PAIN IN EXTREMITY
     Route: 048
     Dates: start: 19991028, end: 20010122
  3. PROCARDIA [Concomitant]
     Indication: HYPERTENSION
     Route: 065
     Dates: start: 19991028
  4. PROCARDIA [Concomitant]
     Indication: CHEST PAIN
     Route: 065
     Dates: start: 19991028
  5. VALIUM [Concomitant]
     Indication: PANIC DISORDER
     Route: 065
  6. VALIUM [Concomitant]
     Indication: MUSCLE SPASMS
     Route: 065
  7. NEURONTIN [Concomitant]
     Indication: PAIN
     Route: 065
  8. CODEINE [Concomitant]
     Route: 065
  9. CLARITIN [Concomitant]
     Indication: HYPERSENSITIVITY
     Route: 065
  10. HEPARIN [Concomitant]
     Route: 065
     Dates: start: 19991216, end: 19991224
  11. ACETAMINOPHEN [Concomitant]
     Indication: BACK PAIN
     Route: 065
  12. DIAZEPAM [Concomitant]
     Route: 065

REACTIONS (20)
  - ARTERIAL THROMBOSIS [None]
  - ARTERIOSCLEROSIS [None]
  - BLISTER [None]
  - CARDIAC TAMPONADE [None]
  - CEREBROVASCULAR ACCIDENT [None]
  - CHEST PAIN [None]
  - CHOLELITHIASIS [None]
  - CORONARY ARTERY DISEASE [None]
  - CYANOSIS [None]
  - DYSPEPSIA [None]
  - HERPES ZOSTER [None]
  - MYOCARDIAL INFARCTION [None]
  - MYOCARDIAL RUPTURE [None]
  - NERVOUS SYSTEM DISORDER [None]
  - PAIN [None]
  - PAIN IN EXTREMITY [None]
  - PANIC DISORDER [None]
  - PARAESTHESIA [None]
  - PERIPHERAL ISCHAEMIA [None]
  - VARICELLA [None]
